FAERS Safety Report 4410727-3 (Version None)
Quarter: 2004Q2

REPORT INFORMATION
  Report Type: 
  Country: None (occurrence: None)
  Receive Date: 20040630
  Receipt Date: 20040503
  Transmission Date: 20050107
  Serious: No
  Sender: FDA-Public Use
  Company Number: 04P-163-0258801-00

PATIENT
  Sex: Male

DRUGS (1)
  1. HUMIRA [Suspect]
     Dosage: 40 MG SUBCUTANEOUS
     Route: 058

REACTIONS (2)
  - DYSPNOEA [None]
  - NEUROLOGICAL SYMPTOM [None]
